FAERS Safety Report 21639885 (Version 2)
Quarter: 2023Q1

REPORT INFORMATION
  Report Type: Report from Study
  Country: US (occurrence: US)
  Receive Date: 20221124
  Receipt Date: 20230112
  Transmission Date: 20230417
  Serious: No
  Sender: FDA-Public Use
  Company Number: US-ABBVIE-4177418

PATIENT
  Sex: Female

DRUGS (1)
  1. HUMIRA [Suspect]
     Active Substance: ADALIMUMAB
     Indication: Ankylosing spondylitis
     Dosage: CITRATE FREE?40 MG STRENGTH
     Route: 058
     Dates: end: 20221128

REACTIONS (2)
  - Nasopharyngitis [Not Recovered/Not Resolved]
  - Sinusitis [Unknown]
